FAERS Safety Report 9335536 (Version 1)
Quarter: 2013Q2

REPORT INFORMATION
  Report Type: Report from Study
  Country: JP (occurrence: JP)
  Receive Date: 20130607
  Receipt Date: 20130607
  Transmission Date: 20140414
  Serious: Yes (Other)
  Sender: FDA-Public Use
  Company Number: JP-B.I. PHARMACEUTICALS,INC./RIDGEFIELD-2013-BI-16009NB

PATIENT
  Age: 74 Year
  Sex: Female
  Weight: 53.3 kg

DRUGS (2)
  1. PRADAXA [Suspect]
     Indication: CEREBROVASCULAR ACCIDENT PROPHYLAXIS
     Dosage: 220 MG
     Route: 048
     Dates: start: 20120924
  2. CIBENZOLINE SUCCINATE [Concomitant]
     Indication: CARDIOVERSION
     Route: 048

REACTIONS (2)
  - Cardiac failure acute [Recovered/Resolved]
  - Mitral valve incompetence [Recovered/Resolved]
